FAERS Safety Report 19562036 (Version 1)
Quarter: 2021Q3

REPORT INFORMATION
  Report Type: Spontaneous
  Country: US (occurrence: US)
  Receive Date: 20210716
  Receipt Date: 20210716
  Transmission Date: 20211014
  Serious: Yes (Life-Threatening, Disabling, Other)
  Sender: FDA-Public Use
  Company Number: None

PATIENT
  Age: 67 Year
  Sex: Female
  Weight: 54 kg

DRUGS (1)
  1. LORAZEPAM. [Suspect]
     Active Substance: LORAZEPAM
     Indication: SLEEP DISORDER
     Dosage: ?          QUANTITY:30 TABLET(S);?
     Route: 048
     Dates: start: 20141103, end: 20150601

REACTIONS (20)
  - Depression [None]
  - Fear [None]
  - Headache [None]
  - Anxiety [None]
  - Lethargy [None]
  - Tremor [None]
  - Visual impairment [None]
  - Hyperacusis [None]
  - Emotional poverty [None]
  - Myalgia [None]
  - Nausea [None]
  - Depersonalisation/derealisation disorder [None]
  - Parosmia [None]
  - Fatigue [None]
  - Diarrhoea [None]
  - Tinnitus [None]
  - Crying [None]
  - Asthenia [None]
  - Decreased appetite [None]
  - Anhedonia [None]

NARRATIVE: CASE EVENT DATE: 20160301
